FAERS Safety Report 13880871 (Version 6)
Quarter: 2018Q1

REPORT INFORMATION
  Report Type: Report from Study
  Country: None (occurrence: US)
  Receive Date: 20170818
  Receipt Date: 20180309
  Transmission Date: 20180508
  Serious: Yes (Other)
  Sender: FDA-Public Use
  Company Number: US-ABBVIE-17K-163-2072471-00

PATIENT
  Age: 57 Year
  Sex: Female
  Weight: 93.07 kg

DRUGS (6)
  1. HUMIRA [Suspect]
     Active Substance: ADALIMUMAB
     Indication: RHEUMATOID ARTHRITIS
     Route: 058
     Dates: end: 20170609
  2. HUMIRA [Suspect]
     Active Substance: ADALIMUMAB
     Route: 058
     Dates: start: 20170915, end: 2017
  3. HUMIRA [Suspect]
     Active Substance: ADALIMUMAB
     Route: 058
     Dates: start: 2017
  4. METHOTREXATE. [Concomitant]
     Active Substance: METHOTREXATE
     Indication: RHEUMATOID ARTHRITIS
  5. PREDNISONE. [Concomitant]
     Active Substance: PREDNISONE
     Indication: RHEUMATOID ARTHRITIS
  6. FOLGARD [Concomitant]
     Indication: PRODUCT USED FOR UNKNOWN INDICATION

REACTIONS (13)
  - Joint stiffness [Recovered/Resolved]
  - Drug ineffective [Unknown]
  - Sinusitis [Recovering/Resolving]
  - Exostosis [Recovering/Resolving]
  - Rheumatoid arthritis [Recovered/Resolved]
  - Arthralgia [Recovered/Resolved]
  - Upper respiratory tract infection [Unknown]
  - Bronchitis [Recovering/Resolving]
  - Gait disturbance [Unknown]
  - Vomiting [Unknown]
  - Anxiety [Unknown]
  - Joint swelling [Recovered/Resolved]
  - Rheumatoid arthritis [Unknown]

NARRATIVE: CASE EVENT DATE: 2017
